FAERS Safety Report 9222731 (Version 1)
Quarter: 2013Q2

REPORT INFORMATION
  Report Type: Spontaneous
  Country: US (occurrence: US)
  Receive Date: 20130410
  Receipt Date: 20130410
  Transmission Date: 20140414
  Serious: No
  Sender: FDA-Public Use
  Company Number: US-PFIZER INC-2013107286

PATIENT
  Sex: Male

DRUGS (10)
  1. SUTENT [Suspect]
     Indication: INTRAOCULAR MELANOMA
     Dosage: UNK
  2. CISPLATIN [Suspect]
     Indication: INTRAOCULAR MELANOMA
     Dosage: UNK
  3. TAMOXIFEN CITRATE [Suspect]
     Indication: INTRAOCULAR MELANOMA
     Dosage: UNK
  4. LORAZEPAM [Concomitant]
     Dosage: UNK
  5. ZOFRAN [Concomitant]
     Dosage: UNK
  6. COMPAZINE [Concomitant]
     Dosage: UNK
  7. LISINOPRIL [Concomitant]
     Dosage: UNK
  8. CRESTOR [Concomitant]
     Dosage: UNK
  9. GLIPIZIDE [Concomitant]
     Dosage: UNK
  10. METFORMIN [Concomitant]
     Dosage: UNK

REACTIONS (5)
  - Rash [Unknown]
  - Pruritus [Unknown]
  - Local swelling [Unknown]
  - Dyspnoea [Unknown]
  - Off label use [Unknown]
